FAERS Safety Report 17634991 (Version 1)
Quarter: 2020Q2

REPORT INFORMATION
  Report Type: Spontaneous
  Country: US (occurrence: US)
  Receive Date: 20200407
  Receipt Date: 20200407
  Transmission Date: 20200713
  Serious: No
  Sender: FDA-Public Use
  Company Number: US-GLAXOSMITHKLINE-US2020059153

PATIENT

DRUGS (2)
  1. ABREVA [Suspect]
     Active Substance: DOCOSANOL
     Dosage: UNK
  2. ABREVA [Suspect]
     Active Substance: DOCOSANOL

REACTIONS (3)
  - Wrong technique in product usage process [Unknown]
  - Product complaint [Unknown]
  - Drug ineffective [Unknown]
